FAERS Safety Report 21215618 (Version 3)
Quarter: 2023Q1

REPORT INFORMATION
  Report Type: Spontaneous
  Country: US (occurrence: US)
  Receive Date: 20220816
  Receipt Date: 20230106
  Transmission Date: 20230417
  Serious: No
  Sender: FDA-Public Use
  Company Number: US-PFIZER INC-PV202200043543

PATIENT
  Age: 66 Year
  Sex: Female

DRUGS (1)
  1. IBRANCE [Suspect]
     Active Substance: PALBOCICLIB
     Dosage: 125 MG, CYCLIC

REACTIONS (3)
  - White blood cell count decreased [Unknown]
  - Nasopharyngitis [Unknown]
  - Upper respiratory tract infection [Unknown]
